FAERS Safety Report 9255533 (Version 1)
Quarter: 2013Q2

REPORT INFORMATION
  Report Type: Spontaneous
  Country: US (occurrence: US)
  Receive Date: 20130425
  Receipt Date: 20130425
  Transmission Date: 20140414
  Serious: No
  Sender: FDA-Public Use
  Company Number: US-ASTRAZENECA-2013SE25445

PATIENT
  Sex: Male

DRUGS (4)
  1. SYMBICORT [Suspect]
     Indication: EMPHYSEMA
     Dosage: 80 MCG, 2 PUFFS,  BID
     Route: 055
     Dates: start: 201203
  2. SYMBICORT [Suspect]
     Indication: PNEUMONIA
     Dosage: 80 MCG, 2 PUFFS,  BID
     Route: 055
     Dates: start: 201203
  3. SYMBICORT [Suspect]
     Indication: DYSPNOEA
     Dosage: 80 MCG, 2 PUFFS,  BID
     Route: 055
     Dates: start: 201203
  4. HCTZ [Concomitant]
     Indication: HYPERTENSION
     Route: 048
     Dates: start: 201303

REACTIONS (5)
  - Dyspepsia [Unknown]
  - Blood pressure abnormal [Unknown]
  - Eyelid oedema [Unknown]
  - Off label use [Unknown]
  - Drug dose omission [Unknown]
